FAERS Safety Report 17114011 (Version 2)
Quarter: 2019Q4

REPORT INFORMATION
  Report Type: Spontaneous
  Country: FR (occurrence: FR)
  Receive Date: 20191205
  Receipt Date: 20191217
  Transmission Date: 20200122
  Serious: Yes (Other)
  Sender: FDA-Public Use
  Company Number: FR-TEVA-2019-FR-1147993

PATIENT
  Age: 66 Year
  Sex: Female

DRUGS (2)
  1. AMOXICILLINE TEVA 500 MG [Suspect]
     Active Substance: AMOXICILLIN
     Indication: TOOTH ABSCESS
     Dates: start: 20191111, end: 20191118
  2. XANAX [Concomitant]
     Active Substance: ALPRAZOLAM
     Dosage: FROM TIME TO TIME

REACTIONS (3)
  - Angioedema [Recovered/Resolved]
  - Pruritus [Recovered/Resolved]
  - Pharyngeal oedema [Recovered/Resolved]

NARRATIVE: CASE EVENT DATE: 201911
